FAERS Safety Report 6359174-8 (Version None)
Quarter: 2009Q3

REPORT INFORMATION
  Report Type: 
  Country: None (occurrence: None)
  Receive Date: 20090917
  Receipt Date: 20090911
  Transmission Date: 20100115
  Serious: Yes (Hospitalization)
  Sender: FDA-Public Use
  Company Number: FR-JNJFOC-20090805390

PATIENT
  Age: 35 Year
  Sex: Female
  Weight: 90 kg

DRUGS (1)
  1. RISPERDAL CONSTA [Suspect]
     Indication: MENTAL DISORDER
     Route: 030

REACTIONS (2)
  - INJECTION SITE NECROSIS [None]
  - SUBCUTANEOUS ABSCESS [None]
